FAERS Safety Report 9560034 (Version 1)
Quarter: 2013Q3

REPORT INFORMATION
  Report Type: Spontaneous
  Country: FR (occurrence: None)
  Receive Date: 20130925
  Receipt Date: 20130925
  Transmission Date: 20140515
  Serious: Yes (Hospitalization)
  Sender: FDA-Public Use
  Company Number: 7236825

PATIENT
  Age: 78 Year
  Sex: Female

DRUGS (6)
  1. LEVOTHYROX [Suspect]
     Indication: PRODUCT USED FOR UNKNOWN INDICATION
     Dates: end: 20130816
  2. PANTOPRAZOLE [Suspect]
     Indication: PRODUCT USED FOR UNKNOWN INDICATION
     Dates: start: 20130816, end: 20130819
  3. BISOPROLOL (BISOPROLOL) (BISOPROLOL HEMIFUMARATE) [Concomitant]
  4. PADERYL [Suspect]
     Indication: PRODUCT USED FOR UNKNOWN INDICATION
     Dates: start: 20130816, end: 20130819
  5. ATARAX [Concomitant]
  6. PRIMPERAN [Concomitant]

REACTIONS (2)
  - Neutropenia [None]
  - Leukopenia [None]
